FAERS Safety Report 6702877-3 (Version None)
Quarter: 2010Q2

REPORT INFORMATION
  Report Type: 
  Country: None (occurrence: None)
  Receive Date: 20100429
  Receipt Date: 20100429
  Transmission Date: 20101027
  Serious: No
  Sender: FDA-Public Use
  Company Number: None

PATIENT
  Age: 49 Year
  Sex: Female

DRUGS (1)
  1. LAC-HYDRIN [Suspect]
     Dosage: APPLY AS DIRECTED
     Dates: start: 20090521

REACTIONS (2)
  - PRODUCT DEPOSIT [None]
  - SKIN IRRITATION [None]
